FAERS Safety Report 15833897 (Version 4)
Quarter: 2019Q4

REPORT INFORMATION
  Report Type: Spontaneous
  Country: FR (occurrence: FR)
  Receive Date: 20190116
  Receipt Date: 20191106
  Transmission Date: 20200122
  Serious: Yes (Death, Other)
  Sender: FDA-Public Use
  Company Number: FR-MYLANLABS-2019M1003342

PATIENT
  Age: 58 Year
  Sex: Female

DRUGS (5)
  1. ACICLOVIR [Suspect]
     Active Substance: ACYCLOVIR
     Indication: HEPATITIS
     Dosage: UNK
     Route: 065
     Dates: start: 20170918
  2. ACICLOVIR [Suspect]
     Active Substance: ACYCLOVIR
     Indication: HEPATITIS FULMINANT
  3. ACETYLCYSTEINE. [Suspect]
     Active Substance: ACETYLCYSTEINE
     Indication: HEPATITIS FULMINANT
  4. ADALIMUMAB [Concomitant]
     Active Substance: ADALIMUMAB
     Indication: COLITIS
     Dosage: 40 MG EVERY 2 WEEKS
     Route: 065
     Dates: start: 2014
  5. ACETYLCYSTEINE. [Suspect]
     Active Substance: ACETYLCYSTEINE
     Indication: HEPATITIS
     Dosage: UNK
     Route: 065

REACTIONS (5)
  - Hepatitis fulminant [Unknown]
  - Drug ineffective [Fatal]
  - Multiple organ dysfunction syndrome [Fatal]
  - Drug resistance [Unknown]
  - Systemic candida [Fatal]
